FAERS Safety Report 9602737 (Version 1)
Quarter: 2013Q4

REPORT INFORMATION
  Report Type: Spontaneous
  Country: BE (occurrence: None)
  Receive Date: 20131003
  Receipt Date: 20131003
  Transmission Date: 20140711
  Serious: Yes (Hospitalization)
  Sender: FDA-Public Use
  Company Number: 1920220

PATIENT
  Age: 51 Year
  Sex: Female
  Weight: 98 kg

DRUGS (6)
  1. (CARBOPLATIN) [Suspect]
     Indication: OVARIAN CANCER
     Dosage: (1 WEEK)
     Route: 042
     Dates: start: 20130822, end: 20130822
  2. (BISOPROLOL) [Concomitant]
  3. (ALOXI) [Concomitant]
  4. (PHENERGAN /00033001/) [Concomitant]
  5. (DEXAMETHASONE) [Concomitant]
  6. (PACLITAXEL) [Concomitant]

REACTIONS (4)
  - Malaise [None]
  - Respiratory disorder [None]
  - Rash [None]
  - Hot flush [None]
